FAERS Safety Report 22137566 (Version 1)
Quarter: 2023Q1

REPORT INFORMATION
  Report Type: Spontaneous
  Country: US (occurrence: US)
  Receive Date: 20230325
  Receipt Date: 20230325
  Transmission Date: 20230418
  Serious: Yes (Other)
  Sender: FDA-Public Use
  Company Number: US-FreseniusKabi-FK202303709

PATIENT
  Age: 35 Year
  Sex: Male

DRUGS (6)
  1. FLUOROURACIL [Suspect]
     Active Substance: FLUOROURACIL
     Indication: Adenocarcinoma of colon
     Dosage: CONTINUOUS?FOLFOX, PUMP
  2. FLUOROURACIL [Suspect]
     Active Substance: FLUOROURACIL
     Dosage: FLOX, BOLUS
  3. LEUCOVORIN [Concomitant]
     Active Substance: LEUCOVORIN
     Indication: Adenocarcinoma of colon
     Dosage: FOLFOX
  4. LEUCOVORIN [Concomitant]
     Active Substance: LEUCOVORIN
     Dosage: FLOX
  5. OXALIPLATIN [Concomitant]
     Active Substance: OXALIPLATIN
     Indication: Adenocarcinoma of colon
     Dosage: FOLFOX
  6. OXALIPLATIN [Concomitant]
     Active Substance: OXALIPLATIN
     Dosage: FLOX

REACTIONS (1)
  - Arteriospasm coronary [Recovered/Resolved]
